FAERS Safety Report 6497704-6 (Version None)
Quarter: 2009Q4

REPORT INFORMATION
  Report Type: 
  Country: None (occurrence: None)
  Receive Date: 20091211
  Receipt Date: 20091127
  Transmission Date: 20100525
  Serious: Yes (Hospitalization)
  Sender: FDA-Public Use
  Company Number: 2009SP036456

PATIENT
  Age: 93 Year
  Sex: Female

DRUGS (9)
  1. MIRTAZAPINE [Suspect]
     Indication: DRUG USE FOR UNKNOWN INDICATION
     Dosage: 15 MG; QPM; PO 15 MG; QPM; PO
     Dates: start: 20091001, end: 20091010
  2. MIRTAZAPINE [Suspect]
     Indication: DRUG USE FOR UNKNOWN INDICATION
     Dosage: 15 MG; QPM; PO 15 MG; QPM; PO
     Dates: start: 20091001
  3. SMECTA [Concomitant]
  4. PARACETAMOL [Concomitant]
  5. NEXIUM [Concomitant]
  6. PREVISCAN [Concomitant]
  7. DETENSIEL [Concomitant]
  8. ATARAX [Concomitant]
  9. PROCTOLOG [Concomitant]

REACTIONS (7)
  - ABDOMINAL PAIN [None]
  - DIARRHOEA [None]
  - DRUG TOXICITY [None]
  - HYPERTENSION [None]
  - HYPOKALAEMIA [None]
  - HYPONATRAEMIA [None]
  - SUICIDE ATTEMPT [None]
